FAERS Safety Report 18566286 (Version 1)
Quarter: 2020Q4

REPORT INFORMATION
  Report Type: Spontaneous
  Country: FR (occurrence: FR)
  Receive Date: 20201201
  Receipt Date: 20201201
  Transmission Date: 20210114
  Serious: Yes (Hospitalization)
  Sender: FDA-Public Use
  Company Number: FR-MYLANLABS-2020M1097498

PATIENT
  Age: 23 Year
  Sex: Female

DRUGS (22)
  1. METHYLPREDNISOLONE. [Suspect]
     Active Substance: METHYLPREDNISOLONE
     Indication: PROPHYLAXIS AGAINST TRANSPLANT REJECTION
     Dosage: MILLIGRAM/KILOGRAM, QD (2 MG/KG DAILY POD 1 AND 1 MG/KG DAILY PODS 2-7)
     Route: 042
     Dates: start: 201811
  2. METHYLPREDNISOLONE. [Suspect]
     Active Substance: METHYLPREDNISOLONE
     Dosage: 1 MILLIGRAM/KILOGRAM (2 MG/KG DAILY POD 1 AND 1 MG/KG DAILY PODS 2-7   )
     Route: 042
     Dates: start: 202005
  3. MYCOPHENOLIC ACID. [Suspect]
     Active Substance: MYCOPHENOLIC ACID
     Indication: PROPHYLAXIS AGAINST TRANSPLANT REJECTION
     Dosage: UNK, BID
     Route: 065
     Dates: start: 202001
  4. TACROLIMUS. [Suspect]
     Active Substance: TACROLIMUS
     Indication: EPSTEIN-BARR VIRUS ASSOCIATED LYMPHOMA
     Dosage: UNK, BID (TARGET 5-7 NG/ML   )
     Route: 065
     Dates: start: 202001
  5. PREDNISONE. [Suspect]
     Active Substance: PREDNISONE
     Dosage: UNK
     Route: 065
     Dates: start: 201811
  6. ANTITHYMOCYTE IMMUNOGLOBULIN (RABBIT) [Suspect]
     Active Substance: LAPINE T-LYMPHOCYTE IMMUNE GLOBULIN
     Indication: PROPHYLAXIS AGAINST TRANSPLANT REJECTION
     Dosage: UNK
     Route: 042
     Dates: start: 202003
  7. TACROLIMUS. [Suspect]
     Active Substance: TACROLIMUS
     Dosage: UNK, BID (TARGET 8-12 NG/ML)
     Route: 065
     Dates: start: 201811
  8. ANTITHYMOCYTE IMMUNOGLOBULIN (RABBIT) [Suspect]
     Active Substance: LAPINE T-LYMPHOCYTE IMMUNE GLOBULIN
     Dosage: 1.5 MG/KG DAILY (2 DAYS) AND 1 MG/KG DAILY (1 DAY)
     Route: 042
     Dates: start: 201811
  9. RITUXIMAB. [Suspect]
     Active Substance: RITUXIMAB
     Indication: EPSTEIN-BARR VIRUS ASSOCIATED LYMPHOMA
     Dosage: 375 MILLIGRAM/SQ. METER
     Route: 065
     Dates: start: 202001
  10. MYCOPHENOLATE MOFETIL. [Concomitant]
     Active Substance: MYCOPHENOLATE MOFETIL
     Dosage: 750 MILLIGRAM, BID
     Route: 065
     Dates: start: 201912
  11. CYCLOSPORINE. [Concomitant]
     Active Substance: CYCLOSPORINE
     Dosage: TARGET 250-300 NG/ML
     Route: 042
     Dates: start: 202005
  12. TACROLIMUS. [Suspect]
     Active Substance: TACROLIMUS
     Dosage: UNK, BID (TARGET 8-10 NG/ML)
     Route: 065
     Dates: start: 201912
  13. PREDNISONE. [Suspect]
     Active Substance: PREDNISONE
     Dosage: UNK
     Route: 065
     Dates: start: 202001
  14. TACROLIMUS. [Suspect]
     Active Substance: TACROLIMUS
     Indication: PROPHYLAXIS AGAINST TRANSPLANT REJECTION
     Dosage: UNK UNK, BID (TARGET 8-12 NG/ML)
     Route: 065
     Dates: start: 202005
  15. MYCOPHENOLATE MOFETIL. [Concomitant]
     Active Substance: MYCOPHENOLATE MOFETIL
     Dosage: 500 MILLIGRAM, Q8H
     Route: 065
     Dates: start: 201811
  16. MYCOPHENOLIC ACID. [Suspect]
     Active Substance: MYCOPHENOLIC ACID
     Indication: EPSTEIN-BARR VIRUS ASSOCIATED LYMPHOMA
     Dosage: UNK UNK, BID
     Route: 065
     Dates: start: 202003
  17. PREDNISONE. [Suspect]
     Active Substance: PREDNISONE
     Dosage: UNK
     Route: 065
     Dates: start: 201912
  18. PREDNISONE. [Suspect]
     Active Substance: PREDNISONE
     Dosage: UNK
     Route: 065
     Dates: start: 202005
  19. DOBUTAMINE [Concomitant]
     Active Substance: DOBUTAMINE HYDROCHLORIDE
     Dosage: UNK
  20. METHYLPREDNISOLONE. [Suspect]
     Active Substance: METHYLPREDNISOLONE
     Dosage: UNK
     Route: 042
     Dates: start: 202003
  21. TACROLIMUS. [Suspect]
     Active Substance: TACROLIMUS
     Dosage: UNK, BID (TARGET 6-8 NG/ML)
     Route: 065
     Dates: start: 202003
  22. PREDNISONE. [Suspect]
     Active Substance: PREDNISONE
     Indication: PROPHYLAXIS AGAINST TRANSPLANT REJECTION
     Dosage: UNK
     Route: 065
     Dates: start: 202003

REACTIONS (1)
  - COVID-19 [Recovered/Resolved]
